FAERS Safety Report 25190896 (Version 2)
Quarter: 2025Q2

REPORT INFORMATION
  Report Type: Spontaneous
  Country: DE (occurrence: DE)
  Receive Date: 20250411
  Receipt Date: 20250612
  Transmission Date: 20250716
  Serious: Yes (Life-Threatening, Hospitalization)
  Sender: BOEHRINGER INGELHEIM
  Company Number: DE-BoehringerIngelheim-2025-BI-021332

PATIENT
  Age: 42 Year
  Sex: Male
  Weight: 113 kg

DRUGS (3)
  1. JARDIANCE [Suspect]
     Active Substance: EMPAGLIFLOZIN
     Indication: Type 2 diabetes mellitus
  2. METFORMIN [Suspect]
     Active Substance: METFORMIN HYDROCHLORIDE
     Indication: Type 2 diabetes mellitus
  3. CANDESARTAN [Concomitant]
     Active Substance: CANDESARTAN
     Indication: Hypertension

REACTIONS (3)
  - Ketoacidosis [Recovered/Resolved]
  - Dyspnoea [Recovered/Resolved]
  - Glycosylated haemoglobin abnormal [Not Recovered/Not Resolved]

NARRATIVE: CASE EVENT DATE: 20250123
